FAERS Safety Report 5910432-8 (Version None)
Quarter: 2008Q4

REPORT INFORMATION
  Report Type: 
  Country: None (occurrence: None)
  Receive Date: 20081006
  Receipt Date: 20081006
  Transmission Date: 20090506
  Serious: Yes (Other)
  Sender: FDA-Public Use
  Company Number: None

PATIENT
  Age: 51 Year
  Sex: Female
  Weight: 55.7924 kg

DRUGS (1)
  1. MONISTAT 3 [Suspect]
     Indication: VULVOVAGINAL MYCOTIC INFECTION
     Dosage: 200 MG AT BEDTIME VAG
     Route: 067
     Dates: start: 20081001, end: 20081003

REACTIONS (3)
  - ABDOMINAL PAIN [None]
  - CHILLS [None]
  - VOMITING [None]
